FAERS Safety Report 9342157 (Version 1)
Quarter: 2013Q2

REPORT INFORMATION
  Report Type: Spontaneous
  Country: DE (occurrence: SK)
  Receive Date: 20130611
  Receipt Date: 20130611
  Transmission Date: 20140414
  Serious: Yes (Hospitalization)
  Sender: FDA-Public Use
  Company Number: SK-FRI-1000045792

PATIENT
  Age: 55 Year
  Sex: Male
  Weight: 53 kg

DRUGS (4)
  1. ROFLUMILAST [Suspect]
     Indication: CHRONIC OBSTRUCTIVE PULMONARY DISEASE
     Dosage: 250 MCG
     Route: 048
     Dates: start: 201202, end: 20130311
  2. SPIRIVA [Concomitant]
     Indication: CHRONIC OBSTRUCTIVE PULMONARY DISEASE
     Dosage: 18 MCG
     Route: 055
  3. BEROTEC [Concomitant]
     Indication: CHRONIC OBSTRUCTIVE PULMONARY DISEASE
     Dosage: N100 1-2 INHALATIONS
     Route: 055
  4. SERETIDE [Concomitant]
     Dosage: 50/500 2 INHALATIONS
     Route: 055

REACTIONS (3)
  - Large intestine perforation [Recovered/Resolved]
  - Postoperative ileus [Recovered/Resolved]
  - Medication error [Unknown]
